FAERS Safety Report 5290652-9 (Version None)
Quarter: 2007Q2

REPORT INFORMATION
  Report Type: 
  Country: None (occurrence: None)
  Receive Date: 20070409
  Receipt Date: 20070330
  Transmission Date: 20071010
  Serious: Yes (Hospitalization)
  Sender: FDA-Public Use
  Company Number: 07RAN007011

PATIENT
  Age: 83 Year
  Sex: Female

DRUGS (6)
  1. RANIPLEX [Suspect]
     Dosage: 150MG PER DAY
     Route: 048
  2. DIANTALVIC [Suspect]
     Route: 065
     Dates: start: 20060919, end: 20061011
  3. PYOSTACINE [Suspect]
     Indication: ERYSIPELAS
     Route: 065
     Dates: start: 20060919, end: 20060926
  4. ISOSORBIDE MONONITRATE [Suspect]
     Dosage: 20MG UNKNOWN
     Route: 065
  5. ZESTRIL [Suspect]
     Dosage: 20MG UNKNOWN
     Route: 065
     Dates: end: 20060927
  6. LOVENOX [Concomitant]
     Dosage: .4ML UNKNOWN
     Route: 065

REACTIONS (1)
  - PEMPHIGOID [None]
